FAERS Safety Report 6517957-5 (Version None)
Quarter: 2009Q4

REPORT INFORMATION
  Report Type: 
  Country: None (occurrence: None)
  Receive Date: 20091224
  Receipt Date: 20091215
  Transmission Date: 20100525
  Serious: Yes (Other)
  Sender: FDA-Public Use
  Company Number: GR-ELI_LILLY_AND_COMPANY-GR200912004307

PATIENT
  Sex: Female
  Weight: 66 kg

DRUGS (8)
  1. CYMBALTA [Suspect]
     Dosage: UNK, UNKNOWN
     Route: 065
  2. REVLIMID [Concomitant]
     Indication: MULTIPLE MYELOMA
     Dosage: 15 MG, UNKNOWN
     Route: 048
     Dates: start: 20070725, end: 20080728
  3. REVLIMID [Concomitant]
     Dosage: 10 MG, UNKNOWN
     Route: 048
     Dates: start: 20081105, end: 20090310
  4. REVLIMID [Concomitant]
     Dosage: 15 MG, UNKNOWN
     Route: 048
     Dates: start: 20090413, end: 20090610
  5. REVLIMID [Concomitant]
     Dosage: 25 MG, UNKNOWN
     Route: 048
     Dates: start: 20090713
  6. DAONIL [Concomitant]
     Dosage: 0.5 D/F, DAILY (1/D)
     Route: 065
  7. EPREX [Concomitant]
     Dosage: 40000 D/F, WEEKLY (1/W)
     Route: 065
  8. LYRICA [Concomitant]
     Dosage: UNK, UNKNOWN
     Route: 065

REACTIONS (5)
  - AMNESIA [None]
  - CONFUSIONAL STATE [None]
  - DECREASED APPETITE [None]
  - DISORIENTATION [None]
  - SLEEP DISORDER [None]
